FAERS Safety Report 22151971 (Version 1)
Quarter: 2023Q1

REPORT INFORMATION
  Report Type: Report from Study
  Country: CH (occurrence: CH)
  Receive Date: 20230329
  Receipt Date: 20230329
  Transmission Date: 20230417
  Serious: Yes (Death)
  Sender: FDA-Public Use
  Company Number: CH-ABBVIE-4707984

PATIENT
  Age: 74 Year
  Sex: Male

DRUGS (6)
  1. CARBIDOPA\LEVODOPA [Suspect]
     Active Substance: CARBIDOPA\LEVODOPA
     Indication: Parkinson^s disease
     Dosage: MD 7.0 ML, CRD 2.4 ML/H, ED 1.8 ML; CRN 1.2 ML/H
     Dates: start: 20230126, end: 20230324
  2. CARBIDOPA\LEVODOPA [Suspect]
     Active Substance: CARBIDOPA\LEVODOPA
     Dosage: MD 4.0 ML, CRD 2.6 ML/H, ED 1.8 ML; CRN 1.3 ML/H
     Dates: start: 20221112, end: 20221117
  3. CARBIDOPA\LEVODOPA [Suspect]
     Active Substance: CARBIDOPA\LEVODOPA
     Dosage: MD 7.0 ML, CRD 2.3 ML/H, ED 2.0ML; CRN 1.2 ML/H
     Dates: start: 20220811, end: 20221112
  4. CARBIDOPA\LEVODOPA [Suspect]
     Active Substance: CARBIDOPA\LEVODOPA
     Dosage: MD 7.0 ML, CRD 2.6 ML/H, ED 1.8 ML; CRN 1.3 ML/H
     Dates: start: 20221117, end: 20230126
  5. CARBIDOPA\LEVODOPA [Suspect]
     Active Substance: CARBIDOPA\LEVODOPA
     Dates: start: 20180702
  6. KEPPRA [Concomitant]
     Active Substance: LEVETIRACETAM
     Indication: Epilepsy

REACTIONS (1)
  - Death [Fatal]

NARRATIVE: CASE EVENT DATE: 20230301
